FAERS Safety Report 8984717 (Version 1)
Quarter: 2012Q4

REPORT INFORMATION
  Report Type: 
  Country: US (occurrence: US)
  Receive Date: 20121225
  Receipt Date: 20121225
  Transmission Date: 20130627
  Serious: No
  Sender: FDA-Public Use
  Company Number: US-JNJFOC-20121210260

PATIENT
  Sex: Female

DRUGS (1)
  1. SANDOZ FENTANYL TRANSDERMAL SYSTEM [Suspect]
     Indication: PRODUCT USED FOR UNKNOWN INDICATION
     Route: 062

REACTIONS (7)
  - Incorrect drug administration rate [Unknown]
  - Product quality issue [Unknown]
  - Feeling abnormal [Unknown]
  - Wrong technique in drug usage process [Recovered/Resolved]
  - Nausea [Unknown]
  - Wrong technique in drug usage process [Unknown]
  - Product quality issue [Unknown]
